FAERS Safety Report 9799979 (Version 1)
Quarter: 2014Q1

REPORT INFORMATION
  Report Type: Spontaneous
  Country: US (occurrence: US)
  Receive Date: 20140106
  Receipt Date: 20140106
  Transmission Date: 20141002
  Serious: No
  Sender: FDA-Public Use
  Company Number: US-GILEAD-2010-0030382

PATIENT
  Age: 74 Year
  Sex: Female
  Weight: 122.47 kg

DRUGS (16)
  1. LETAIRIS [Suspect]
     Indication: PULMONARY ARTERIAL HYPERTENSION
     Route: 048
     Dates: start: 20100512
  2. LASIX [Concomitant]
  3. POTASSIUM CHLORIDE [Concomitant]
  4. FOLIC ACID [Concomitant]
  5. CYMBALTA [Concomitant]
  6. CLONIDINE HCL [Concomitant]
  7. ATENOLOL [Concomitant]
  8. MECLIZINE [Concomitant]
  9. METHOTREXATE [Concomitant]
  10. PLAQUENIL [Concomitant]
  11. COUMADIN [Concomitant]
  12. DIOVAN HCT [Concomitant]
  13. METFORMIN HCL [Concomitant]
  14. SIMVASTATIN [Concomitant]
  15. ACTOS [Concomitant]
  16. ASPIRIN [Concomitant]

REACTIONS (2)
  - Dyspnoea [Unknown]
  - Fluid retention [Unknown]
